FAERS Safety Report 7092823-8 (Version None)
Quarter: 2010Q4

REPORT INFORMATION
  Report Type: 
  Country: None (occurrence: None)
  Receive Date: 20101110
  Receipt Date: 20101104
  Transmission Date: 20110411
  Serious: No
  Sender: FDA-Public Use
  Company Number: US-PFIZER INC-2010137900

PATIENT
  Sex: Female
  Weight: 70.295 kg

DRUGS (8)
  1. CHANTIX [Suspect]
     Indication: SMOKING CESSATION THERAPY
     Dosage: 0.5 MG, 1X/DAY
     Route: 048
     Dates: start: 20101025
  2. CHANTIX [Suspect]
     Dosage: 1 MG, 2X/DAY
  3. NEXIUM [Concomitant]
     Indication: DYSPEPSIA
     Dosage: 40 MG, 1X/DAY
     Route: 048
  4. NEXIUM [Concomitant]
     Indication: GASTROOESOPHAGEAL REFLUX DISEASE
  5. ACETYLSALICYLIC ACID [Concomitant]
     Indication: CARDIAC DISORDER
     Dosage: 81 MG, 1X/DAY
     Route: 048
  6. NIACIN [Concomitant]
     Indication: MUSCLE DISORDER
     Dosage: 500 MG, UNK
     Route: 048
  7. NIACIN [Concomitant]
     Indication: LIMB DISCOMFORT
  8. XANAX [Concomitant]
     Indication: SLEEP DISORDER
     Dosage: 1 MG, 1X/DAY AT NIGHT
     Route: 048

REACTIONS (3)
  - ABDOMINAL PAIN UPPER [None]
  - BLADDER PAIN [None]
  - MIDDLE INSOMNIA [None]
